FAERS Safety Report 8268853-7 (Version None)
Quarter: 2012Q2

REPORT INFORMATION
  Report Type: 
  Country: None (occurrence: None)
  Receive Date: 20120409
  Receipt Date: 20120409
  Transmission Date: 20120825
  Serious: Yes (Other)
  Sender: FDA-Public Use
  Company Number: None

PATIENT
  Age: 28 Year
  Sex: Female
  Weight: 54.431 kg

DRUGS (1)
  1. MIRENA [Suspect]

REACTIONS (7)
  - LOSS OF LIBIDO [None]
  - ABDOMINAL PAIN UPPER [None]
  - ANGER [None]
  - ACNE [None]
  - FATIGUE [None]
  - FEELING ABNORMAL [None]
  - IRRITABILITY [None]
